FAERS Safety Report 24380373 (Version 6)
Quarter: 2025Q1

REPORT INFORMATION
  Report Type: Other
  Country: US (occurrence: US)
  Receive Date: 20240930
  Receipt Date: 20250213
  Transmission Date: 20250409
  Serious: No
  Sender: TRAVERE THERAPEUTICS
  Company Number: US-TRAVERE-2024TVT00903

PATIENT
  Sex: Female

DRUGS (12)
  1. FILSPARI [Suspect]
     Active Substance: SPARSENTAN
     Indication: IgA nephropathy
     Route: 048
  2. FILSPARI [Suspect]
     Active Substance: SPARSENTAN
     Dosage: INCREASED THE DOSE
     Route: 048
     Dates: start: 20240927, end: 20241209
  3. FILSPARI [Suspect]
     Active Substance: SPARSENTAN
     Dosage: THE PATIENT MISSING 2 DOSES OF FILSPARI DURING SURGERY TIME
     Route: 048
     Dates: start: 20241211
  4. FILSPARI [Suspect]
     Active Substance: SPARSENTAN
     Route: 048
  5. TYLENOL [Concomitant]
     Active Substance: ACETAMINOPHEN
  6. JARDIANCE [Concomitant]
     Active Substance: EMPAGLIFLOZIN
  7. LOVENOX [Concomitant]
     Active Substance: ENOXAPARIN SODIUM
  8. ROXICODONE [Concomitant]
     Active Substance: OXYCODONE HYDROCHLORIDE
  9. PROTONIX [Concomitant]
     Active Substance: PANTOPRAZOLE SODIUM
  10. TARPEYO [Concomitant]
     Active Substance: BUDESONIDE
  11. COLACE [Concomitant]
     Active Substance: DOCUSATE SODIUM
  12. ZOFRAN [Concomitant]
     Active Substance: ONDANSETRON HYDROCHLORIDE

REACTIONS (5)
  - Feeling abnormal [Recovering/Resolving]
  - Dizziness [None]
  - Ear discomfort [Recovering/Resolving]
  - Hypotension [Unknown]
  - Presyncope [Unknown]
